FAERS Safety Report 19589697 (Version 3)
Quarter: 2022Q1

REPORT INFORMATION
  Report Type: Report from Study
  Country: US (occurrence: US)
  Receive Date: 20210721
  Receipt Date: 20220317
  Transmission Date: 20220423
  Serious: Yes (Hospitalization, Other)
  Sender: FDA-Public Use
  Company Number: US-NOVARTISPH-NVSC2021US152659

PATIENT
  Sex: Male

DRUGS (8)
  1. ENTRESTO [Suspect]
     Active Substance: SACUBITRIL\VALSARTAN
     Indication: Product used for unknown indication
     Dosage: UNK
     Route: 065
  2. ENTRESTO [Suspect]
     Active Substance: SACUBITRIL\VALSARTAN
     Dosage: 1 UNK, BID (49/51MG)
     Route: 048
     Dates: start: 2016
  3. ENTRESTO [Suspect]
     Active Substance: SACUBITRIL\VALSARTAN
     Dosage: UNK
     Route: 048
     Dates: start: 2019
  4. ENTRESTO [Suspect]
     Active Substance: SACUBITRIL\VALSARTAN
     Dosage: 50 MG (24/26 MG)
     Route: 048
  5. ENTRESTO [Suspect]
     Active Substance: SACUBITRIL\VALSARTAN
     Dosage: 100 MG, BID(49/51 MG)
     Route: 048
  6. CARVEDILOL [Suspect]
     Active Substance: CARVEDILOL
     Indication: Product used for unknown indication
     Dosage: 6.25 MG
     Route: 065
     Dates: start: 202110
  7. CARVEDILOL [Suspect]
     Active Substance: CARVEDILOL
     Dosage: 12.5 MG
     Route: 065
  8. WARFARIN [Concomitant]
     Active Substance: WARFARIN
     Indication: Product used for unknown indication
     Dosage: UNK
     Route: 065

REACTIONS (8)
  - Pericardial effusion [Recovering/Resolving]
  - Dyspnoea [Recovering/Resolving]
  - Chest pain [Recovered/Resolved]
  - Chest pain [Not Recovered/Not Resolved]
  - Renal impairment [Recovering/Resolving]
  - Fluid retention [Not Recovered/Not Resolved]
  - Malaise [Recovering/Resolving]
  - Asthenia [Not Recovered/Not Resolved]

NARRATIVE: CASE EVENT DATE: 20190101
